FAERS Safety Report 9171177 (Version 1)
Quarter: 2013Q1

REPORT INFORMATION
  Report Type: Spontaneous
  Country: US (occurrence: US)
  Receive Date: 20130319
  Receipt Date: 20130319
  Transmission Date: 20140127
  Serious: Yes (Other)
  Sender: FDA-Public Use
  Company Number: PHEH2013US006084

PATIENT
  Sex: Male

DRUGS (2)
  1. GLEEVEC [Suspect]
     Indication: ACUTE MYELOID LEUKAEMIA
     Dosage: 100 MG DAILY
     Route: 048
     Dates: start: 20120511
  2. GLEEVEC [Suspect]
     Dosage: 100 MG, QOD
     Route: 048
     Dates: start: 20120511

REACTIONS (2)
  - Mass [Unknown]
  - Dizziness [Unknown]
